FAERS Safety Report 4862587-4 (Version None)
Quarter: 2005Q4

REPORT INFORMATION
  Report Type: 
  Country: None (occurrence: None)
  Receive Date: 20051219
  Receipt Date: 20051219
  Transmission Date: 20060501
  Serious: Yes (Other)
  Sender: FDA-Public Use
  Company Number: None

PATIENT
  Sex: Female
  Weight: 63.5036 kg

DRUGS (3)
  1. KLONOPIN [Suspect]
     Indication: BIPOLAR DISORDER
     Dosage: 0.5 MG ONCE BID PRN
  2. KLONOPIN [Suspect]
     Indication: GENERALISED ANXIETY DISORDER
     Dosage: 0.5 MG ONCE BID PRN
  3. KLONOPIN [Suspect]
     Indication: PANIC DISORDER
     Dosage: 0.5 MG ONCE BID PRN

REACTIONS (1)
  - DRUG INEFFECTIVE [None]
